FAERS Safety Report 11243463 (Version 1)
Quarter: 2015Q3

REPORT INFORMATION
  Report Type: Spontaneous
  Country: IT (occurrence: IT)
  Receive Date: 20150707
  Receipt Date: 20150707
  Transmission Date: 20151125
  Serious: Yes (Other)
  Sender: FDA-Public Use
  Company Number: IT-TEVA-576159ACC

PATIENT
  Age: 49 Year
  Sex: Female
  Weight: 52 kg

DRUGS (1)
  1. COPAXONE [Suspect]
     Active Substance: GLATIRAMER ACETATE
     Indication: RELAPSING-REMITTING MULTIPLE SCLEROSIS
     Dosage: 20 MG DAILY
     Route: 058
     Dates: start: 20080701, end: 20150623

REACTIONS (5)
  - Injection site atrophy [Unknown]
  - Lipodystrophy acquired [Unknown]
  - Skin reaction [Unknown]
  - Injection site induration [Unknown]
  - Fatigue [Unknown]

NARRATIVE: CASE EVENT DATE: 20140101
